FAERS Safety Report 5510397-7 (Version None)
Quarter: 2007Q4

REPORT INFORMATION
  Report Type: 
  Country: None (occurrence: None)
  Receive Date: 20071108
  Receipt Date: 20071106
  Transmission Date: 20080405
  Serious: Yes (Hospitalization)
  Sender: FDA-Public Use
  Company Number: US-BRISTOL-MYERS SQUIBB COMPANY-13970405

PATIENT
  Age: 53 Year
  Sex: Female
  Weight: 98 kg

DRUGS (4)
  1. CETUXIMAB [Suspect]
     Indication: COLON CANCER
     Dosage: CYC-1:400MG/M2 OVER 2 HOURS ON DAY 1. 250MG/M2 OVER 1 HOUR ON DAY 8.
     Route: 042
     Dates: start: 20071017
  2. LEUCOVORIN CALCIUM [Suspect]
     Indication: COLON CANCER
     Dosage: 400 MG/M2 IV OVER 120 MIN ON DAY 1
     Route: 042
     Dates: start: 20071017
  3. FLUOROURACIL [Suspect]
     Indication: COLON CANCER
     Dosage: 400 MG/M2 IV PUSH ON DAY 1 FOLLOWED BY 2400 MG/M2 CIV OVER 46-48 HRS.
     Route: 042
     Dates: start: 20071019
  4. OXALIPLATIN [Suspect]
     Indication: COLON CANCER
     Dosage: 85 MG/M2 IV OVER 120 MIN ON DAY 1
     Route: 042
     Dates: start: 20071017

REACTIONS (5)
  - ATRIAL FIBRILLATION [None]
  - CHEST PAIN [None]
  - DYSPNOEA [None]
  - NAUSEA [None]
  - VOMITING [None]
